FAERS Safety Report 12707193 (Version 1)
Quarter: 2016Q3

REPORT INFORMATION
  Report Type: Spontaneous
  Country: US (occurrence: US)
  Receive Date: 20160901
  Receipt Date: 20160901
  Transmission Date: 20161109
  Serious: Yes (Death)
  Sender: FDA-Public Use
  Company Number: US-KAMADA LIMITED-2016US001089

PATIENT

DRUGS (1)
  1. GLASSIA [Suspect]
     Active Substance: .ALPHA.1-PROTEINASE INHIBITOR HUMAN
     Indication: EMPHYSEMA
     Dosage: UNK

REACTIONS (1)
  - Chronic obstructive pulmonary disease [Fatal]
